FAERS Safety Report 7831094-9 (Version None)
Quarter: 2011Q4

REPORT INFORMATION
  Report Type: 
  Country: None (occurrence: None)
  Receive Date: 20111021
  Receipt Date: 20111020
  Transmission Date: 20120403
  Serious: Yes (Hospitalization)
  Sender: FDA-Public Use
  Company Number: PHHY2011NL92527

PATIENT
  Sex: Female

DRUGS (5)
  1. ZOMETA [Suspect]
     Indication: BREAST CANCER METASTATIC
     Dosage: 4MG/5ML ONCE EVERY 42 DAYS
     Dates: start: 20090409
  2. ZOMETA [Suspect]
     Dosage: 4MG/5ML ONCE EVERY 42 DAYS
     Dates: start: 20110908
  3. ZOMETA [Suspect]
     Dosage: 4MG/5ML ONCE EVERY 42 DAYS
     Dates: start: 20111020
  4. METFORMIN HCL [Concomitant]
     Dosage: 500 MG, QD
  5. GLICLAZIDE [Concomitant]
     Dosage: 80 MG, BID

REACTIONS (3)
  - FATIGUE [None]
  - GENERAL PHYSICAL HEALTH DETERIORATION [None]
  - APHASIA [None]
